FAERS Safety Report 5766685-2 (Version None)
Quarter: 2008Q2

REPORT INFORMATION
  Report Type: 
  Country: None (occurrence: None)
  Receive Date: 20080612
  Receipt Date: 20080530
  Transmission Date: 20081010
  Serious: Yes (Hospitalization, Other)
  Sender: FDA-Public Use
  Company Number: GB-JNJFOC-20061203160

PATIENT
  Sex: Male
  Weight: 89 kg

DRUGS (6)
  1. REMICADE [Suspect]
     Indication: RHEUMATOID ARTHRITIS
     Route: 042
  2. METHOTREXATE [Concomitant]
     Route: 065
  3. EPANUTIN [Concomitant]
     Route: 065
  4. FOLIC ACID [Concomitant]
     Route: 065
  5. MELOXICAM [Concomitant]
     Route: 065
  6. CYCLOSPORINE [Concomitant]

REACTIONS (4)
  - LEG AMPUTATION [None]
  - PERIPHERAL VASCULAR DISORDER [None]
  - STAPHYLOCOCCAL INFECTION [None]
  - VASCULITIS [None]
